FAERS Safety Report 4554543-0 (Version None)
Quarter: 2005Q1

REPORT INFORMATION
  Report Type: 
  Country: None (occurrence: None)
  Receive Date: 20050118
  Receipt Date: 20041129
  Transmission Date: 20050727
  Serious: Yes (Hospitalization, Other)
  Sender: FDA-Public Use
  Company Number: PHEH2004US12799

PATIENT
  Age: 84 Year
  Sex: Female

DRUGS (9)
  1. ZOLOFT [Concomitant]
     Dosage: 25 MG, QD
     Dates: start: 20041101
  2. AMBIEN [Concomitant]
     Dosage: 5 MG, QD
  3. OSCAL [Concomitant]
     Dosage: 500 MG, BID
  4. EXELON [Suspect]
     Indication: DEMENTIA ALZHEIMER'S TYPE
     Dosage: 3 MG, BID
     Dates: start: 20040715, end: 20041129
  5. ATENOLOL [Concomitant]
     Indication: CARDIAC DISORDER
     Dosage: 25 MG, BID
     Route: 048
  6. LIPITOR [Concomitant]
     Indication: BLOOD CHOLESTEROL INCREASED
     Dosage: 10 MG, QD
  7. SYNTHROID [Concomitant]
     Indication: THYROID DISORDER
     Dosage: 88 UG, QD
  8. RANITIDINE [Concomitant]
     Indication: GASTROOESOPHAGEAL REFLUX DISEASE
     Dosage: 150 MG, BID
  9. COLACE [Concomitant]
     Dosage: 100 MG, BID

REACTIONS (7)
  - ARRHYTHMIA [None]
  - BLOOD PRESSURE INCREASED [None]
  - CONVULSION [None]
  - DEPRESSED LEVEL OF CONSCIOUSNESS [None]
  - HEART RATE IRREGULAR [None]
  - PULSE ABSENT [None]
  - VENTRICULAR TACHYCARDIA [None]
